FAERS Safety Report 9637990 (Version 3)
Quarter: 2013Q4

REPORT INFORMATION
  Report Type: Spontaneous
  Country: FR (occurrence: FR)
  Receive Date: 20131022
  Receipt Date: 20131125
  Transmission Date: 20140711
  Serious: Yes (Other)
  Sender: FDA-Public Use
  Company Number: FR-009507513-1310FRA006439

PATIENT
  Age: 39 Year
  Sex: Female
  Weight: 105.5 kg

DRUGS (8)
  1. NEXPLANON [Suspect]
     Dosage: UNK
     Route: 059
     Dates: start: 201209
  2. LAMICTAL [Concomitant]
     Dosage: 200 MG, QD
  3. LOXEN [Concomitant]
  4. SEROPLEX [Concomitant]
  5. JANUMET [Concomitant]
  6. DIAMICRON [Concomitant]
  7. LEVOTHYROX [Concomitant]
  8. ALPRAZOLAM [Concomitant]
     Dosage: 6 DF, QD

REACTIONS (2)
  - Abortion spontaneous [Unknown]
  - Unintended pregnancy [Recovered/Resolved]
